FAERS Safety Report 7907014-5 (Version None)
Quarter: 2011Q4

REPORT INFORMATION
  Report Type: 
  Country: None (occurrence: None)
  Receive Date: 20111110
  Receipt Date: 20111104
  Transmission Date: 20120403
  Serious: Yes (Hospitalization)
  Sender: FDA-Public Use
  Company Number: JP-MERCK-1111USA00208

PATIENT
  Age: 72 Year
  Sex: Male

DRUGS (4)
  1. HYZAAR [Suspect]
     Indication: HYPERTENSION
     Route: 048
     Dates: start: 20110818, end: 20110929
  2. JANUVIA [Concomitant]
     Indication: DIABETES MELLITUS
     Route: 048
     Dates: start: 20101221, end: 20110929
  3. DIAZEPAM [Concomitant]
     Route: 048
     Dates: end: 20110929
  4. MUCOSTA [Concomitant]
     Route: 048
     Dates: end: 20110929

REACTIONS (1)
  - RHABDOMYOLYSIS [None]
